FAERS Safety Report 10065933 (Version 3)
Quarter: 2014Q2

REPORT INFORMATION
  Report Type: Spontaneous
  Country: US (occurrence: US)
  Receive Date: 20140408
  Receipt Date: 20140417
  Transmission Date: 20141212
  Serious: No
  Sender: FDA-Public Use
  Company Number: US-PFIZER INC-2014095879

PATIENT
  Age: 64 Year
  Sex: Male
  Weight: 99.77 kg

DRUGS (1)
  1. LYRICA [Suspect]
     Indication: FIBROMYALGIA
     Dosage: 75 MG, 2X/DAY
     Route: 048
     Dates: end: 201403

REACTIONS (4)
  - Drug effect incomplete [Unknown]
  - Back pain [Not Recovered/Not Resolved]
  - Fibromyalgia [Unknown]
  - Pain [Unknown]
